FAERS Safety Report 6588691-0 (Version None)
Quarter: 2010Q1

REPORT INFORMATION
  Report Type: 
  Country: None (occurrence: None)
  Receive Date: 20100218
  Receipt Date: 20100211
  Transmission Date: 20100710
  Serious: Yes (Other)
  Sender: FDA-Public Use
  Company Number: A0844227A

PATIENT
  Age: 45 Year
  Sex: Male
  Weight: 94 kg

DRUGS (1)
  1. ALLI [Suspect]
     Route: 048
     Dates: start: 20100123, end: 20100130

REACTIONS (4)
  - DYSPEPSIA [None]
  - ILL-DEFINED DISORDER [None]
  - RECTAL DISCHARGE [None]
  - RECTAL HAEMORRHAGE [None]
